FAERS Safety Report 20450544 (Version 1)
Quarter: 2022Q1

REPORT INFORMATION
  Report Type: Spontaneous
  Country: US (occurrence: None)
  Receive Date: 20220209
  Receipt Date: 20220209
  Transmission Date: 20220423
  Serious: Yes (Hospitalization)
  Sender: FDA-Public Use
  Company Number: None

PATIENT
  Sex: Male

DRUGS (1)
  1. PROCRIT [Suspect]
     Active Substance: ERYTHROPOIETIN
     Indication: Anaemia
     Dosage: OTHER QUANTITY : 10,000 UNITS;?FREQUENCY : WEEKLY;?
     Route: 058
     Dates: start: 20220106

REACTIONS (2)
  - Asthenia [None]
  - Myelodysplastic syndrome [None]
